FAERS Safety Report 8558246-7 (Version None)
Quarter: 2012Q3

REPORT INFORMATION
  Report Type: 
  Country: None (occurrence: None)
  Receive Date: 20120801
  Receipt Date: 20120727
  Transmission Date: 20120928
  Serious: Yes (Hospitalization)
  Sender: FDA-Public Use
  Company Number: PHHY2012IT065391

PATIENT
  Sex: Female

DRUGS (8)
  1. LANSOPRAZOLE [Concomitant]
  2. RAMIPRIL [Suspect]
     Indication: HYPERTENSION
     Dosage: 5 MG,
     Route: 048
     Dates: start: 20070101, end: 20120719
  3. LASIX [Suspect]
     Indication: HYPERTENSION
     Dosage: 1 DF
     Route: 048
     Dates: start: 20070101, end: 20120719
  4. AMLODIPINE [Concomitant]
  5. METFORMIN HYDROCHLORIDE [Concomitant]
  6. BISOPROLOL FUMARATE [Concomitant]
  7. LORAZEPAM [Concomitant]
  8. COUMADIN [Concomitant]
     Indication: ATRIAL FIBRILLATION

REACTIONS (4)
  - BRADYKINESIA [None]
  - FALL [None]
  - HYPONATRAEMIA [None]
  - BRADYPHRENIA [None]
